FAERS Safety Report 5695265-2 (Version None)
Quarter: 2008Q2

REPORT INFORMATION
  Report Type: 
  Country: None (occurrence: None)
  Receive Date: 20080404
  Receipt Date: 20080401
  Transmission Date: 20081010
  Serious: Yes (Death)
  Sender: FDA-Public Use
  Company Number: JP-BOEHRINGER INGELHEIM GMBH, GERMANY-2008-BP-04765NB

PATIENT
  Sex: Male
  Weight: 56 kg

DRUGS (7)
  1. MICARDIS [Suspect]
     Indication: HYPERTENSION
     Route: 048
     Dates: start: 20060818
  2. BASSAMIN [Concomitant]
     Route: 048
     Dates: start: 20051111
  3. KENTAN [Concomitant]
     Indication: INTERVERTEBRAL DISC DISORDER
     Route: 048
     Dates: start: 20050705
  4. MUCOSTA [Concomitant]
     Indication: GASTRITIS
     Route: 048
     Dates: start: 20051027
  5. YATORIP [Concomitant]
     Indication: HYPERLIPIDAEMIA
     Route: 048
     Dates: start: 20070116
  6. CALBLOCK [Concomitant]
     Indication: HYPERTENSION
     Route: 048
     Dates: start: 20050705
  7. KAZMARIN [Concomitant]
     Indication: HYPERTENSION
     Route: 048
     Dates: start: 20060721

REACTIONS (1)
  - CEREBRAL INFARCTION [None]
